FAERS Safety Report 20957025 (Version 1)
Quarter: 2022Q2

REPORT INFORMATION
  Report Type: Spontaneous
  Country: AU (occurrence: AU)
  Receive Date: 20220614
  Receipt Date: 20220614
  Transmission Date: 20220720
  Serious: Yes (Other)
  Sender: FDA-Public Use
  Company Number: AU-MLMSERVICE-20220530-3582719-1

PATIENT
  Age: 40 Year
  Sex: Male

DRUGS (3)
  1. DOXORUBICIN HYDROCHLORIDE [Suspect]
     Active Substance: DOXORUBICIN HYDROCHLORIDE
     Indication: Nephroblastoma
     Dosage: 30 MG/M2, CYCLIC,60 MG 3 WEEKS, FOR EIGHT CYCLES
     Route: 042
  2. VINCRISTINE [Suspect]
     Active Substance: VINCRISTINE
     Indication: Nephroblastoma
     Dosage: 1.5 MG/M2, CYCLIC, EVERY 3 WEEKS FOR EIGHT CYCLES, MAX DOSE,
     Route: 042
  3. DACTINOMYCIN [Suspect]
     Active Substance: DACTINOMYCIN
     Indication: Nephroblastoma
     Dosage: 1.5 MG/M2, CYCLIC,EVERY 3 WEEKS FOR EIGHT CYCLES,  MAX DOSE 2 MG
     Route: 042

REACTIONS (13)
  - Neutropenia [Recovered/Resolved]
  - Neuropathy peripheral [Recovered/Resolved]
  - Hepatic function abnormal [Recovered/Resolved]
  - Taste disorder [Recovered/Resolved]
  - Alopecia [Recovered/Resolved]
  - Lymphopenia [Recovered/Resolved]
  - Nausea [Recovered/Resolved]
  - Fatigue [Recovered/Resolved]
  - Mucosal inflammation [Recovered/Resolved]
  - Stomatitis [Recovered/Resolved]
  - Dysaesthesia [Recovered/Resolved]
  - Lethargy [Recovered/Resolved]
  - Hyperaesthesia [Recovered/Resolved]
